FAERS Safety Report 4348180-0 (Version None)
Quarter: 2004Q1

REPORT INFORMATION
  Report Type: 
  Country: None (occurrence: None)
  Receive Date: 20040325
  Receipt Date: 20040223
  Transmission Date: 20041129
  Serious: No
  Sender: FDA-Public Use
  Company Number: USA040259154

PATIENT
  Age: 83 Year
  Sex: Female
  Weight: 45 kg

DRUGS (7)
  1. FORTEO [Suspect]
     Indication: BONE DISORDER
     Dosage: 20 UG/DAY
     Dates: start: 20030908
  2. FORTEO [Suspect]
     Indication: OSTEOPOROSIS
     Dosage: 20 UG/DAY
     Dates: start: 20030908
  3. CITRACAL (CALCIUM CITRATE) [Concomitant]
  4. CELEBREX [Concomitant]
  5. ZANAPLEX (TIZANIDINE HYDROCHLORIDE) [Concomitant]
  6. TYLENOL [Concomitant]
  7. VITAMIN B-12 [Concomitant]

REACTIONS (9)
  - ASTHENIA [None]
  - BLOOD PRESSURE SYSTOLIC INCREASED [None]
  - DYSARTHRIA [None]
  - EXTRASYSTOLES [None]
  - FATIGUE [None]
  - FEELING ABNORMAL [None]
  - HEART RATE INCREASED [None]
  - HYPERTENSION [None]
  - PALPITATIONS [None]
